FAERS Safety Report 7620278-0 (Version None)
Quarter: 2011Q3

REPORT INFORMATION
  Report Type: 
  Country: None (occurrence: None)
  Receive Date: 20110719
  Receipt Date: 20110711
  Transmission Date: 20111222
  Serious: Yes (Death, Life-Threatening, Other)
  Sender: FDA-Public Use
  Company Number: PHHO2008DE06074

PATIENT
  Sex: Male
  Weight: 120 kg

DRUGS (6)
  1. EVEROLIMUS [Suspect]
     Indication: HEART TRANSPLANT
     Dosage: 0.5 MG, BID
     Route: 048
     Dates: start: 20080411, end: 20080502
  2. SANDIMMUNE [Suspect]
     Indication: HEART TRANSPLANT
     Dosage: 290 MG, BID
     Route: 048
     Dates: start: 20080409
  3. SANDIMMUNE [Suspect]
     Dosage: 130 MG, BID
     Route: 042
     Dates: start: 20080409
  4. PREDNISOLONE [Suspect]
     Indication: HEART TRANSPLANT
     Dosage: 25 MG, QD
     Route: 048
     Dates: start: 20080414
  5. EVEROLIMUS [Suspect]
     Dosage: 0.25 MG, QD
     Route: 048
     Dates: end: 20080524
  6. PREDNISOLONE [Suspect]
     Dosage: 7.5 MG, BID
     Route: 042
     Dates: start: 20080424

REACTIONS (10)
  - LEUKOPENIA [None]
  - LARGE INTESTINE PERFORATION [None]
  - MULTI-ORGAN FAILURE [None]
  - HAEMODYNAMIC INSTABILITY [None]
  - MEDIASTINITIS [None]
  - WOUND DEHISCENCE [None]
  - METABOLIC ACIDOSIS [None]
  - ANASTOMOTIC COMPLICATION [None]
  - INFECTIOUS PERITONITIS [None]
  - SEPSIS [None]
